FAERS Safety Report 4958249-5 (Version None)
Quarter: 2006Q1

REPORT INFORMATION
  Report Type: 
  Country: None (occurrence: None)
  Receive Date: 20060330
  Receipt Date: 20060323
  Transmission Date: 20060701
  Serious: Yes (Hospitalization)
  Sender: FDA-Public Use
  Company Number: CH-GLAXOSMITHKLINE-B0417531A

PATIENT
  Age: 49 Year
  Sex: Male

DRUGS (11)
  1. LAMIVUDINE [Suspect]
     Indication: HIV INFECTION
     Dosage: 150MG TWICE PER DAY
     Route: 048
     Dates: start: 20050528, end: 20050607
  2. TAVANIC [Suspect]
     Indication: OSTEOMYELITIS
     Dosage: 500MG UNKNOWN
     Route: 048
     Dates: start: 20050530, end: 20050608
  3. SAQUINAVIR MESILATE [Suspect]
     Indication: HIV INFECTION
     Dosage: 1000MG TWICE PER DAY
     Route: 048
     Dates: start: 20050528, end: 20050607
  4. NORVIR [Suspect]
     Indication: HIV INFECTION
     Dosage: 100MG TWICE PER DAY
     Route: 048
     Dates: start: 20050528, end: 20050607
  5. VIREAD [Concomitant]
     Indication: HIV INFECTION
     Dosage: 245MG PER DAY
     Route: 048
     Dates: start: 20050528, end: 20050607
  6. NEXIUM [Concomitant]
     Indication: DRUG USE FOR UNKNOWN INDICATION
     Dosage: 22.3MG PER DAY
     Route: 048
  7. PREDNISONE [Concomitant]
     Indication: DRUG USE FOR UNKNOWN INDICATION
     Dosage: 5MG PER DAY
     Route: 048
  8. DALACIN C [Concomitant]
     Indication: DRUG USE FOR UNKNOWN INDICATION
     Dosage: 300MG THREE TIMES PER DAY
     Route: 048
  9. AMOXICILLIN + CLAVULANATE POTASSIUM [Concomitant]
     Indication: DRUG USE FOR UNKNOWN INDICATION
     Route: 065
  10. CIPROFLOXACIN [Concomitant]
     Indication: DRUG USE FOR UNKNOWN INDICATION
     Route: 065
  11. LAMIVUDINE + ZIDOVUDINE [Concomitant]
     Indication: SYSTEMIC ANTIVIRAL TREATMENT
     Route: 065
     Dates: end: 20050512

REACTIONS (1)
  - THROMBOCYTOPENIA [None]
